FAERS Safety Report 7474034-7 (Version None)
Quarter: 2011Q2

REPORT INFORMATION
  Report Type: 
  Country: None (occurrence: None)
  Receive Date: 20110511
  Receipt Date: 20110509
  Transmission Date: 20111010
  Serious: Yes (Other)
  Sender: FDA-Public Use
  Company Number: US-PFIZER INC-2010031693

PATIENT
  Age: 45 Year
  Sex: Male

DRUGS (10)
  1. WARFARIN SODIUM [Concomitant]
  2. DIPROPHYLLINE [Concomitant]
  3. LASIX [Concomitant]
  4. REVATIO [Suspect]
     Indication: PULMONARY HYPERTENSION
     Dosage: UNK
     Route: 048
     Dates: start: 20090929, end: 20100116
  5. AMBRISENTAN [Suspect]
     Indication: PULMONARY ARTERIAL HYPERTENSION
     Dosage: 10 MG, UNK
     Route: 048
     Dates: start: 20090601, end: 20100116
  6. PROTONIX [Concomitant]
  7. FLOLAN [Suspect]
     Dosage: UNK
  8. ALLOPURINOL [Suspect]
     Dosage: UNK
  9. GABAPENTIN [Concomitant]
  10. ADVAIR DISKUS 100/50 [Concomitant]

REACTIONS (2)
  - OROPHARYNGEAL BLISTERING [None]
  - URTICARIA [None]
